FAERS Safety Report 8823431 (Version 1)
Quarter: 2012Q4

REPORT INFORMATION
  Report Type: 
  Country: US (occurrence: US)
  Receive Date: 20121003
  Receipt Date: 20121003
  Transmission Date: 20130627
  Serious: No
  Sender: FDA-Public Use
  Company Number: US-009507513-1210USA000647

PATIENT
  Age: 90 Year
  Sex: Female

DRUGS (9)
  1. JANUVIA [Suspect]
     Dosage: 100 mg, qd
     Dates: start: 20100520
  2. JANUVIA [Suspect]
     Dosage: UNK
     Dates: end: 20120519
  3. ONGLYZA [Suspect]
     Route: 048
  4. LEVOXYL [Concomitant]
  5. GLIMEPIRIDE [Concomitant]
  6. DIGOXIN [Concomitant]
  7. DYAZIDE [Concomitant]
  8. DILTIAZEM HYDROCHLORIDE [Concomitant]
  9. LEXAPRO [Concomitant]

REACTIONS (3)
  - Blood glucose increased [Unknown]
  - Diarrhoea [Unknown]
  - Vomiting [Unknown]
